FAERS Safety Report 4732440-5 (Version None)
Quarter: 2005Q3

REPORT INFORMATION
  Report Type: 
  Country: None (occurrence: None)
  Receive Date: 20050801
  Receipt Date: 20050718
  Transmission Date: 20060218
  Serious: Yes (Other)
  Sender: FDA-Public Use
  Company Number: HQWYE811629JUN05

PATIENT
  Age: 43 Year
  Sex: Male
  Weight: 72.64 kg

DRUGS (1)
  1. ADVIL COLD AND SINUS (IBUPROFEN/PSEUDOEPHEDRINE HYDROCHLORIDE, CAPLET) [Suspect]
     Indication: HEADACHE
     Dosage: 2 CAPLETS ONCE, ORAL
     Route: 048
     Dates: start: 20050624, end: 20050624

REACTIONS (9)
  - CHEST PAIN [None]
  - DYSPNOEA [None]
  - HEADACHE [None]
  - HYPERSENSITIVITY [None]
  - PAIN IN EXTREMITY [None]
  - PRURITUS [None]
  - PRURITUS GENITAL [None]
  - SWELLING FACE [None]
  - URTICARIA [None]
